FAERS Safety Report 15803541 (Version 1)
Quarter: 2019Q1

REPORT INFORMATION
  Report Type: Spontaneous
  Country: US (occurrence: US)
  Receive Date: 20190109
  Receipt Date: 20190109
  Transmission Date: 20190417
  Serious: Yes (Other)
  Sender: FDA-Public Use
  Company Number: None

PATIENT
  Age: 3 Year
  Sex: Female

DRUGS (2)
  1. MONTELUCAST [Suspect]
     Active Substance: MONTELUKAST SODIUM
     Indication: ASTHMA
     Dates: start: 20100901, end: 20121001
  2. MONTELUCAST [Suspect]
     Active Substance: MONTELUKAST SODIUM
     Indication: HYPERSENSITIVITY
     Dates: start: 20100901, end: 20121001

REACTIONS (4)
  - Mood swings [None]
  - Muscle spasms [None]
  - Sleep terror [None]
  - Aggression [None]

NARRATIVE: CASE EVENT DATE: 20120201
